FAERS Safety Report 8551490-4 (Version None)
Quarter: 2012Q3

REPORT INFORMATION
  Report Type: 
  Country: None (occurrence: None)
  Receive Date: 20120730
  Receipt Date: 20120725
  Transmission Date: 20120928
  Serious: Yes (Other)
  Sender: FDA-Public Use
  Company Number: DE-ROCHE-1092982

PATIENT

DRUGS (9)
  1. CELLCEPT [Suspect]
     Indication: RENAL TRANSPLANT
     Dates: start: 20120101
  2. SPIRONOLACTONE [Concomitant]
  3. RAMIPRIL [Concomitant]
  4. FUROSEMIDE [Concomitant]
  5. FORMOTEROL FUMARATE [Concomitant]
     Indication: CHRONIC OBSTRUCTIVE PULMONARY DISEASE
  6. SPIRIVA [Concomitant]
     Indication: CHRONIC OBSTRUCTIVE PULMONARY DISEASE
  7. TACROLIMUS [Concomitant]
     Indication: RENAL TRANSPLANT
     Dates: start: 20120101
  8. PREDNISOLONE [Concomitant]
  9. AMLODIPINE [Concomitant]

REACTIONS (3)
  - CAPILLARY LEAK SYNDROME [None]
  - RESPIRATORY FAILURE [None]
  - PULMONARY OEDEMA [None]
